FAERS Safety Report 8588332-7 (Version None)
Quarter: 2012Q3

REPORT INFORMATION
  Report Type: 
  Country: None (occurrence: None)
  Receive Date: 20120813
  Receipt Date: 20120731
  Transmission Date: 20120928
  Serious: Yes (Life-Threatening, Other)
  Sender: FDA-Public Use
  Company Number: DE-ELI_LILLY_AND_COMPANY-DE201208000032

PATIENT
  Sex: Female

DRUGS (5)
  1. ENALAPRIL MALEATE [Concomitant]
     Dosage: 10 MG, QD
  2. ASPIRIN [Concomitant]
     Dosage: 100 MG, QD
  3. CYMBALTA [Suspect]
     Indication: DEPRESSION
     Dosage: 30 MG, UNK
     Route: 048
     Dates: start: 20120524, end: 20120527
  4. AMLODIPINE [Concomitant]
     Dosage: 7.5 MG, QD
  5. BISOPROLOL FUMARATE [Concomitant]
     Dosage: 5 MG, QD

REACTIONS (6)
  - BLOOD SODIUM DECREASED [None]
  - DELIRIUM [None]
  - FRACTURE [None]
  - CONFUSIONAL STATE [None]
  - VERTIGO [None]
  - FALL [None]
